FAERS Safety Report 16876953 (Version 3)
Quarter: 2020Q2

REPORT INFORMATION
  Report Type: Spontaneous
  Country: AR (occurrence: AR)
  Receive Date: 20191002
  Receipt Date: 20200612
  Transmission Date: 20200713
  Serious: Yes (Hospitalization, Other)
  Sender: FDA-Public Use
  Company Number: AR-PFIZER INC-2019418789

PATIENT
  Age: 56 Year
  Sex: Female

DRUGS (1)
  1. GENOTROPIN [Suspect]
     Active Substance: SOMATROPIN
     Indication: GROWTH HORMONE DEFICIENCY
     Dosage: 0.1-0.5 MG, 6 TIMES PER WEEK
     Dates: start: 20060102, end: 201908

REACTIONS (5)
  - Paralysis [Unknown]
  - Motor dysfunction [Recovering/Resolving]
  - Hemiparesis [Unknown]
  - Cerebrovascular accident [Unknown]
  - Diplopia [Unknown]

NARRATIVE: CASE EVENT DATE: 2019
